APPROVED DRUG PRODUCT: BUMETANIDE
Active Ingredient: BUMETANIDE
Strength: 0.25MG/ML
Dosage Form/Route: INJECTABLE;INJECTION
Application: A079196 | Product #001 | TE Code: AP
Applicant: WEST-WARD PHARMACEUTICALS INTERNATIONAL LTD
Approved: Apr 30, 2008 | RLD: No | RS: Yes | Type: RX